FAERS Safety Report 8620168 (Version 2)
Quarter: 2012Q4

REPORT INFORMATION
  Report Type: 
  Country: GB (occurrence: GB)
  Receive Date: 20120618
  Receipt Date: 20120905
  Transmission Date: 20130627
  Serious: Yes (Death, Life-Threatening)
  Sender: FDA-Public Use
  Company Number: GB-TEVA-2011004511

PATIENT
  Age: 52 Year
  Sex: Female
  Weight: 95 kg

DRUGS (32)
  1. BENDAMUSTINE HCL [Suspect]
     Indication: CHRONIC LYMPHOCYTIC LEUKAEMIA
     Dosage: 125 Milligram Daily;
     Route: 042
     Dates: start: 20110804
  2. MABTHERA [Suspect]
     Indication: CHRONIC LYMPHOCYTIC LEUKAEMIA
     Dosage: 700 Milligram Daily;
     Route: 042
     Dates: start: 20110804
  3. CETRIZINE (CETIRIZINE HYDROCHLORIDE) [Concomitant]
     Indication: HYPERSENSITIVITY
  4. PROMETHAZINE [Concomitant]
     Indication: MOTION SICKNESS
  5. RISEDRONIC ACID [Concomitant]
  6. PREDNISOLONE [Concomitant]
  7. AMITRIPTYLINE [Concomitant]
  8. THYROXIN [Concomitant]
  9. ACYCLOVIR [Concomitant]
     Indication: ANTIVIRAL PROPHYLAXIS
  10. DAPSONE [Concomitant]
  11. ALLOPURINOL [Concomitant]
  12. CAMPATH [Concomitant]
     Indication: CHRONIC LYMPHOCYTIC LEUKAEMIA
     Route: 042
     Dates: start: 201001
  13. CANDESARTAN [Concomitant]
     Indication: BLOOD PRESSURE
  14. MONOCLONAL ANTIBODIES [Concomitant]
     Indication: CHRONIC LYMPHOCYTIC LEUKAEMIA
     Dates: start: 2009
  15. FLUCONAZOLE [Concomitant]
     Indication: CANDIDIASIS
  16. FLUDARA [Concomitant]
     Indication: CHRONIC LYMPHOCYTIC LEUKAEMIA
     Route: 048
     Dates: start: 2001
  17. LACTULOSE [Concomitant]
     Indication: CONSTIPATION
  18. METOCLOPRAMIDE [Concomitant]
     Indication: MALAISE
  19. ONDANSETRON [Concomitant]
     Indication: MALAISE
  20. SENNA [Concomitant]
     Indication: CONSTIPATION
  21. CALCICHEW D3 FORTE [Concomitant]
  22. ATORVASTATIN [Concomitant]
  23. RANITIDINE [Concomitant]
  24. OMEPRAZOLE [Concomitant]
  25. CHLORHEXIDINE [Concomitant]
  26. OILATUM [Concomitant]
  27. BENZYDAMINE HYDROCHLORIDE [Concomitant]
  28. DEXAMETHASONE [Concomitant]
  29. HYDROCORTICONE [Concomitant]
  30. PERINDOPRIL [Concomitant]
  31. PROPANTHELINE [Concomitant]
  32. CALCEOS [Concomitant]

REACTIONS (1)
  - Progressive multifocal leukoencephalopathy [Fatal]
